FAERS Safety Report 12758020 (Version 10)
Quarter: 2022Q3

REPORT INFORMATION
  Report Type: Spontaneous
  Country: US (occurrence: US)
  Receive Date: 20160919
  Receipt Date: 20220819
  Transmission Date: 20221026
  Serious: Yes (Other)
  Sender: FDA-Public Use
  Company Number: US-PFIZER INC-2016434097

PATIENT
  Age: 83 Year
  Sex: Female

DRUGS (1)
  1. XELJANZ [Suspect]
     Active Substance: TOFACITINIB CITRATE
     Indication: Rheumatoid arthritis
     Dosage: 5 MG, 2X/DAY
     Dates: start: 20160710

REACTIONS (5)
  - Blindness [Not Recovered/Not Resolved]
  - Intentional product misuse [Unknown]
  - Intentional dose omission [Unknown]
  - Musculoskeletal stiffness [Unknown]
  - Throat irritation [Unknown]

NARRATIVE: CASE EVENT DATE: 20160101
